FAERS Safety Report 9421086 (Version 1)
Quarter: 2013Q3

REPORT INFORMATION
  Report Type: Spontaneous
  Country: US (occurrence: US)
  Receive Date: 20130725
  Receipt Date: 20130725
  Transmission Date: 20140515
  Serious: Yes (Other)
  Sender: FDA-Public Use
  Company Number: CHPA2013US011623

PATIENT
  Sex: Female

DRUGS (1)
  1. GAS-X EXTRA STRENGTH SOFTGELS [Suspect]
     Dosage: 375 MG, QD
     Route: 048

REACTIONS (1)
  - Loss of consciousness [Unknown]
